FAERS Safety Report 22637399 (Version 1)
Quarter: 2023Q2

REPORT INFORMATION
  Report Type: Spontaneous
  Country: US (occurrence: None)
  Receive Date: 20230623
  Receipt Date: 20230623
  Transmission Date: 20230722
  Serious: No
  Sender: FDA-Public Use
  Company Number: None

PATIENT

DRUGS (3)
  1. CLONIDINE [Suspect]
     Active Substance: CLONIDINE
  2. HYDROXYUREA [Suspect]
     Active Substance: HYDROXYUREA
  3. HYDROXYUREA [Suspect]
     Active Substance: HYDROXYUREA

REACTIONS (5)
  - Product dispensing error [None]
  - Wrong product administered [None]
  - Sleep disorder [None]
  - Nausea [None]
  - Vomiting [None]
